FAERS Safety Report 7622092-9 (Version None)
Quarter: 2011Q3

REPORT INFORMATION
  Report Type: 
  Country: None (occurrence: None)
  Receive Date: 20110720
  Receipt Date: 20110127
  Transmission Date: 20111222
  Serious: Yes (Hospitalization, Other)
  Sender: FDA-Public Use
  Company Number: US-BAYER-201038062NA

PATIENT
  Age: 21 Year
  Sex: Female
  Weight: 65.76 kg

DRUGS (15)
  1. YAZ [Suspect]
     Indication: CONTRACEPTION
     Dosage: UNK
     Dates: start: 20070601, end: 20071201
  2. CONCERTA [Concomitant]
  3. NSAID'S [Concomitant]
     Dosage: UNK
     Dates: start: 20070101, end: 20080101
  4. CARBAMAZEPINE [Concomitant]
     Indication: MULTIPLE SCLEROSIS
  5. VITAMIN B COMPLEX CAP [Concomitant]
     Indication: PRODUCT USED FOR UNKNOWN INDICATION
  6. LEXAPRO [Concomitant]
     Dosage: 5 MG, UNK
     Route: 048
  7. BACLOFEN [Concomitant]
     Indication: PRODUCT USED FOR UNKNOWN INDICATION
  8. YASMIN [Suspect]
     Indication: CONTRACEPTION
     Dosage: UNK
  9. YAZ [Suspect]
     Indication: ACNE
  10. PHENOBARBITAL TAB [Concomitant]
     Dosage: UNK
     Dates: start: 20070101, end: 20080101
  11. DROSPIRENONE AND ETHINYL ESTRADIOL [Suspect]
     Indication: ACNE
  12. NORTRIPTYLINE HCL [Concomitant]
     Indication: PRODUCT USED FOR UNKNOWN INDICATION
  13. DIAZEPAM [Concomitant]
     Indication: PRODUCT USED FOR UNKNOWN INDICATION
  14. HYDROCODONE BITARTRATE AND ACETAMINOPHEN [Concomitant]
     Indication: PRODUCT USED FOR UNKNOWN INDICATION
  15. YASMIN [Suspect]
     Indication: ACNE

REACTIONS (6)
  - NAUSEA [None]
  - NEPHROLITHIASIS [None]
  - ABDOMINAL PAIN UPPER [None]
  - BILIARY DYSKINESIA [None]
  - ABDOMINAL PAIN [None]
  - INJURY [None]
